FAERS Safety Report 17275556 (Version 1)
Quarter: 2020Q1

REPORT INFORMATION
  Report Type: Spontaneous
  Country: FR (occurrence: FR)
  Receive Date: 20200116
  Receipt Date: 20200116
  Transmission Date: 20200409
  Serious: Yes (Other)
  Sender: FDA-Public Use
  Company Number: FR-AMGEN-FRASP2020004275

PATIENT
  Age: 84 Year
  Sex: Male
  Weight: 75 kg

DRUGS (1)
  1. NPLATE [Suspect]
     Active Substance: ROMIPLOSTIM
     Indication: IMMUNE THROMBOCYTOPENIC PURPURA
     Dosage: 530 MICROGRAM, QWK
     Route: 058
     Dates: start: 20191121, end: 20191128

REACTIONS (3)
  - Product prescribing error [Recovered/Resolved]
  - Thrombocytosis [Recovered/Resolved]
  - Accidental overdose [Recovered/Resolved]

NARRATIVE: CASE EVENT DATE: 20191121
